FAERS Safety Report 10451924 (Version 1)
Quarter: 2014Q3

REPORT INFORMATION
  Report Type: Spontaneous
  Country: US (occurrence: US)
  Receive Date: 20140915
  Receipt Date: 20140915
  Transmission Date: 20150326
  Serious: No
  Sender: FDA-Public Use
  Company Number: US-BIOGENIDEC-2014BI092237

PATIENT

DRUGS (1)
  1. TECFIDERA [Suspect]
     Active Substance: DIMETHYL FUMARATE
     Indication: MULTIPLE SCLEROSIS

REACTIONS (9)
  - Muscle spasms [Unknown]
  - Multiple sclerosis relapse [Unknown]
  - Intentional underdose [Unknown]
  - Dyspepsia [Unknown]
  - Pruritus [Unknown]
  - Alopecia [Unknown]
  - Hypoaesthesia [Unknown]
  - Drug ineffective [Unknown]
  - Flushing [Unknown]
